FAERS Safety Report 9430845 (Version 1)
Quarter: 2013Q3

REPORT INFORMATION
  Report Type: Spontaneous
  Country: GB (occurrence: None)
  Receive Date: 20130726
  Receipt Date: 20130726
  Transmission Date: 20140515
  Serious: Yes (Death, Other)
  Sender: FDA-Public Use
  Company Number: MC201300390

PATIENT
  Sex: Male

DRUGS (3)
  1. ANGIOMAX, ANGIOX (BIVALIRUDIN) INJECTION [Suspect]
     Indication: STENT PLACEMENT
  2. ANGIOMAX, ANGIOX (BIVALIRUDIN) INJECTION [Suspect]
     Indication: ANGIOPLASTY
  3. TICAGRELOR [Suspect]
     Dosage: 180 MG, LOAD DOSE ORAL
     Route: 048

REACTIONS (2)
  - Presyncope [None]
  - Thrombosis in device [None]
